FAERS Safety Report 9252500 (Version 2)
Quarter: 2013Q2

REPORT INFORMATION
  Report Type: Report from Study
  Country: US (occurrence: US)
  Receive Date: 20130424
  Receipt Date: 20130524
  Transmission Date: 20140414
  Serious: Yes (Other)
  Sender: FDA-Public Use
  Company Number: US-BAYER-2013-041463

PATIENT
  Age: 63 Year
  Sex: Female

DRUGS (3)
  1. STIVARGA [Suspect]
     Indication: COLON CANCER
     Dosage: 160 MG DAILY 21 DAYS ON THEN 7 DAYS OFF
     Route: 048
     Dates: start: 20130227
  2. STIVARGA [Suspect]
     Indication: COLON CANCER
     Dosage: 120 MG (3X40 MG TABLETS) DAILY FOR 12 DAYS EVERY 3 WEEKS
     Route: 048
  3. METFORMIN [Concomitant]

REACTIONS (6)
  - Hypersensitivity [Recovered/Resolved]
  - Pyrexia [Recovered/Resolved]
  - Dyspnoea [Recovered/Resolved]
  - Nausea [None]
  - Asthenia [None]
  - Abdominal pain [None]
